FAERS Safety Report 8097093 (Version 3)
Quarter: 2014Q3

REPORT INFORMATION
  Report Type: Spontaneous
  Country: PL (occurrence: PL)
  Receive Date: 20110819
  Receipt Date: 20140916
  Transmission Date: 20150326
  Serious: Yes (Death, Other)
  Sender: FDA-Public Use
  Company Number: PL-BRISTOL-MYERS SQUIBB COMPANY-15967110

PATIENT
  Age: 36 Year
  Sex: Male

DRUGS (1)
  1. YERVOY [Suspect]
     Active Substance: IPILIMUMAB
     Route: 042

REACTIONS (8)
  - Febrile neutropenia [Recovered/Resolved]
  - Anaemia [Unknown]
  - VIIth nerve paralysis [Unknown]
  - Peripheral motor neuropathy [Unknown]
  - Paralysis [Unknown]
  - Malignant neoplasm progression [Fatal]
  - Convulsion [Unknown]
  - Neutropenia [Unknown]

NARRATIVE: CASE EVENT DATE: 201212
